FAERS Safety Report 25762374 (Version 3)
Quarter: 2025Q4

REPORT INFORMATION
  Report Type: Spontaneous
  Country: US (occurrence: US)
  Receive Date: 20250904
  Receipt Date: 20251125
  Transmission Date: 20260118
  Serious: No
  Sender: DR REDDYS
  Company Number: US-DRL-USA-USA/2025/08/012915

PATIENT
  Age: 73 Year
  Sex: Female
  Weight: 68.038 kg

DRUGS (2)
  1. OMEPRAZOLE [Suspect]
     Active Substance: OMEPRAZOLE
     Indication: Dyspepsia
     Dosage: SHE BEGAN USING THE NEW REFILL AROUND 13-AUG-2025 AND TOOK IT FOR THREE CONSECUTIVE DAYS (13-AUG-202
     Route: 048
     Dates: start: 20250813
  2. PRAVASTATIN [Concomitant]
     Active Substance: PRAVASTATIN
     Indication: Blood cholesterol abnormal

REACTIONS (1)
  - Drug ineffective [Unknown]

NARRATIVE: CASE EVENT DATE: 20250813
